FAERS Safety Report 25700489 (Version 4)
Quarter: 2025Q4

REPORT INFORMATION
  Report Type: Spontaneous
  Country: US (occurrence: US)
  Receive Date: 20250819
  Receipt Date: 20251009
  Transmission Date: 20260117
  Serious: No
  Sender: PFIZER
  Company Number: US-PFIZER INC-PV202500099127

PATIENT
  Age: 10 Year
  Sex: Male
  Weight: 43.991 kg

DRUGS (1)
  1. BICILLIN L-A [Suspect]
     Active Substance: PENICILLIN G BENZATHINE
     Indication: Pharyngitis
     Dosage: ONE TIME INJECTION
     Route: 030
     Dates: start: 20250429, end: 20250429

REACTIONS (2)
  - Off label use [Unknown]
  - Recalled product administered [Unknown]
